FAERS Safety Report 14081135 (Version 2)
Quarter: 2017Q4

REPORT INFORMATION
  Report Type: Spontaneous
  Country: FR (occurrence: FR)
  Receive Date: 20171012
  Receipt Date: 20171019
  Transmission Date: 20180321
  Serious: Yes (Death)
  Sender: FDA-Public Use
  Company Number: FR-FRESENIUS KABI-FK201708457

PATIENT
  Age: 3 Day
  Sex: Female
  Weight: .91 kg

DRUGS (3)
  1. VITALIPID INFANT [Suspect]
     Active Substance: ERGOCALCIFEROL\PHYTONADIONE\TOCOPHEROL\VITAMIN A PALMITATE
     Indication: PARENTERAL NUTRITION
     Route: 041
     Dates: start: 20171002, end: 20171004
  2. PEDIAVEN AP-HP (NOT SPECIFIED) [Suspect]
     Active Substance: AMINO ACIDS\DEXTROSE\ELECTROLYTES NOS
     Indication: PARENTERAL NUTRITION
     Route: 041
     Dates: start: 20171002, end: 20171004
  3. SMOFLIPID [Suspect]
     Active Substance: FISH OIL\MEDIUM-CHAIN TRIGLYCERIDES\OLIVE OIL\SOYBEAN OIL
     Indication: PARENTERAL NUTRITION
     Route: 041
     Dates: start: 20171002, end: 20171004

REACTIONS (5)
  - Bradycardia [None]
  - Bacillus infection [None]
  - Sepsis neonatal [Fatal]
  - Intraventricular haemorrhage neonatal [Fatal]
  - Cardio-respiratory arrest [None]

NARRATIVE: CASE EVENT DATE: 20171004
